FAERS Safety Report 6231369-3 (Version None)
Quarter: 2009Q2

REPORT INFORMATION
  Report Type: 
  Country: None (occurrence: None)
  Receive Date: 20090616
  Receipt Date: 20090603
  Transmission Date: 20091009
  Serious: Yes (Hospitalization)
  Sender: FDA-Public Use
  Company Number: IN-SOLVAY-00309003072

PATIENT
  Age: 14172 Day
  Sex: Male
  Weight: 46 kg

DRUGS (1)
  1. CREON [Suspect]
     Indication: PANCREATITIS CHRONIC
     Dosage: DAILY DOSE:  UNKNOWN, FREQUENCY: 3-4
     Route: 048
     Dates: start: 20090314, end: 20090519

REACTIONS (3)
  - ABDOMINAL PAIN [None]
  - JAUNDICE [None]
  - VOMITING [None]
